FAERS Safety Report 15745327 (Version 1)
Quarter: 2018Q4

REPORT INFORMATION
  Report Type: Spontaneous
  Country: US (occurrence: US)
  Receive Date: 20181220
  Receipt Date: 20181220
  Transmission Date: 20190205
  Serious: No
  Sender: FDA-Public Use
  Company Number: US-HORIZON-PEN-1389-2018

PATIENT
  Sex: Male

DRUGS (1)
  1. PENNSAID [Suspect]
     Active Substance: DICLOFENAC SODIUM
     Indication: KNEE OPERATION

REACTIONS (2)
  - Off label use [Unknown]
  - Dermatitis contact [Not Recovered/Not Resolved]
